FAERS Safety Report 5664298-4 (Version None)
Quarter: 2008Q1

REPORT INFORMATION
  Report Type: 
  Country: None (occurrence: None)
  Receive Date: 20080312
  Receipt Date: 20080227
  Transmission Date: 20080703
  Serious: Yes (Hospitalization)
  Sender: FDA-Public Use
  Company Number: 2008BI004572

PATIENT
  Age: 43 Year
  Sex: Female
  Weight: 68.4932 kg

DRUGS (6)
  1. TYSABRI [Suspect]
     Indication: MULTIPLE SCLEROSIS
     Dosage: 300 MG;QM;IV
     Route: 042
     Dates: start: 20080101
  2. BACLOFEN [Concomitant]
  3. EFFEXOR [Concomitant]
  4. MOTRIN [Concomitant]
  5. NEURONTIN [Concomitant]
  6. TOPAMAX [Concomitant]

REACTIONS (5)
  - FIBROMYALGIA [None]
  - HAEMOGLOBIN DECREASED [None]
  - HEADACHE [None]
  - IDIOPATHIC THROMBOCYTOPENIC PURPURA [None]
  - RAYNAUD'S PHENOMENON [None]
